FAERS Safety Report 13702686 (Version 1)
Quarter: 2017Q2

REPORT INFORMATION
  Report Type: Spontaneous
  Country: IT (occurrence: IT)
  Receive Date: 20170629
  Receipt Date: 20170629
  Transmission Date: 20170830
  Serious: Yes (Hospitalization)
  Sender: FDA-Public Use
  Company Number: IT-JNJFOC-20170620685

PATIENT
  Age: 79 Year
  Sex: Female
  Weight: 90 kg

DRUGS (2)
  1. DUROGESIC [Suspect]
     Active Substance: FENTANYL
     Indication: OSTEOARTHRITIS
     Route: 062
     Dates: start: 20170530, end: 20170603
  2. DUROGESIC [Suspect]
     Active Substance: FENTANYL
     Indication: SENILE ANKYLOSING VERTEBRAL HYPEROSTOSIS
     Route: 062
     Dates: start: 20170530, end: 20170603

REACTIONS (3)
  - Speech disorder [Recovered/Resolved]
  - Hallucination [Recovered/Resolved]
  - Confusional state [Recovered/Resolved]

NARRATIVE: CASE EVENT DATE: 20170603
